FAERS Safety Report 4304622-8 (Version None)
Quarter: 2004Q1

REPORT INFORMATION
  Report Type: 
  Country: None (occurrence: None)
  Receive Date: 20040226
  Receipt Date: 20031104
  Transmission Date: 20041129
  Serious: No
  Sender: FDA-Public Use
  Company Number: US-GLAXOSMITHKLINE-A0432859A

PATIENT
  Age: 16 Year
  Sex: Male

DRUGS (3)
  1. WELLBUTRIN [Suspect]
     Indication: DEPRESSION
     Route: 048
     Dates: start: 20031103
  2. SAM E [Concomitant]
  3. MULTIVITAMIN [Concomitant]

REACTIONS (3)
  - AGITATION [None]
  - ANGER [None]
  - INSOMNIA [None]
